FAERS Safety Report 13150214 (Version 1)
Quarter: 2017Q1

REPORT INFORMATION
  Report Type: Spontaneous
  Country: US (occurrence: US)
  Receive Date: 20170125
  Receipt Date: 20170125
  Transmission Date: 20170428
  Serious: Yes (Hospitalization, Other)
  Sender: FDA-Public Use
  Company Number: US-PFIZER INC-2017025910

PATIENT

DRUGS (3)
  1. CORTISONE [Concomitant]
     Active Substance: CORTISONE\HYDROCORTISONE
     Indication: ANORECTAL DISORDER
  2. PREPARATION H MEDICATED WIPES [Suspect]
     Active Substance: WITCH HAZEL
     Indication: HAEMORRHOIDS
     Dosage: UNK
     Dates: end: 201701
  3. CORTISONE [Concomitant]
     Active Substance: CORTISONE\HYDROCORTISONE
     Indication: HAEMORRHOIDS

REACTIONS (5)
  - Skin exfoliation [Recovering/Resolving]
  - Burns third degree [Unknown]
  - Pain [Unknown]
  - Coagulopathy [Unknown]
  - Cerebrovascular accident [Unknown]
